FAERS Safety Report 5116961-1 (Version None)
Quarter: 2006Q3

REPORT INFORMATION
  Report Type: 
  Country: None (occurrence: None)
  Receive Date: 20060925
  Receipt Date: 20060913
  Transmission Date: 20061208
  Serious: Yes (Hospitalization)
  Sender: FDA-Public Use
  Company Number: 147601USA

PATIENT
  Age: 31 Year
  Sex: Female

DRUGS (1)
  1. FLUOXETINE [Suspect]
     Indication: DEPRESSIVE SYMPTOM
     Dosage: 20 MG

REACTIONS (6)
  - BIPOLAR I DISORDER [None]
  - BRIEF PSYCHOTIC DISORDER, WITH POSTPARTUM ONSET [None]
  - CONDITION AGGRAVATED [None]
  - DELUSION OF GRANDEUR [None]
  - DEPRESSION [None]
  - SUICIDAL IDEATION [None]
